FAERS Safety Report 5291161-3 (Version None)
Quarter: 2007Q2

REPORT INFORMATION
  Report Type: 
  Country: None (occurrence: None)
  Receive Date: 20070409
  Receipt Date: 20070322
  Transmission Date: 20071010
  Serious: Yes (Hospitalization)
  Sender: FDA-Public Use
  Company Number: FR-JNJFOC-20070305729

PATIENT
  Age: 27 Year
  Sex: Female
  Weight: 52 kg

DRUGS (9)
  1. REMICADE [Suspect]
     Route: 042
  2. REMICADE [Suspect]
     Route: 042
  3. REMICADE [Suspect]
     Indication: CROHN'S DISEASE
     Dosage: Q8WKS
     Route: 042
  4. CORTANCYL [Concomitant]
     Route: 048
  5. MONOTILDIEM [Concomitant]
  6. IDEOS [Concomitant]
  7. NEXIUM [Concomitant]
  8. ETONOGESTREL IMPLANT [Concomitant]
  9. POTASSIUM SUPPLEMENTS [Concomitant]

REACTIONS (5)
  - BACTERIAL INFECTION [None]
  - BLOOD CREATINE PHOSPHOKINASE INCREASED [None]
  - MYOSITIS [None]
  - PNEUMONIA [None]
  - SKIN INFECTION [None]
